FAERS Safety Report 23652937 (Version 1)
Quarter: 2024Q1

REPORT INFORMATION
  Report Type: Spontaneous
  Country: IN (occurrence: IN)
  Receive Date: 20240320
  Receipt Date: 20240320
  Transmission Date: 20240410
  Serious: Yes (Other)
  Sender: FDA-Public Use
  Company Number: IN-SLATERUN-2024SRLIT00027

PATIENT
  Age: 69 Year
  Sex: Male

DRUGS (3)
  1. GANCICLOVIR [Suspect]
     Active Substance: GANCICLOVIR
     Indication: Cytomegalovirus chorioretinitis
     Dosage: 13 INJECTIONS OF (2.5 MG/0.05 ML)
     Route: 035
  2. GANCICLOVIR [Suspect]
     Active Substance: GANCICLOVIR
     Dosage: 14 MORE INJECTIONS OVER THE NEXT 3 MONTHS (2.5 MG/0.05 ML)
     Route: 035
  3. VALGANCICLOVIR [Concomitant]
     Active Substance: VALGANCICLOVIR
     Indication: Cytomegalovirus chorioretinitis
     Route: 048

REACTIONS (3)
  - Retinal toxicity [Recovered/Resolved]
  - Retinal depigmentation [Recovered/Resolved]
  - Off label use [Unknown]
